FAERS Safety Report 25996483 (Version 2)
Quarter: 2025Q4

REPORT INFORMATION
  Report Type: Spontaneous
  Country: GB (occurrence: GB)
  Receive Date: 20251104
  Receipt Date: 20251217
  Transmission Date: 20260118
  Serious: Yes (Hospitalization, Other)
  Sender: IPSEN BIOPHARMACEUTICALS, INC.
  Company Number: GB-ADVANZ PHARMA-202402001866

PATIENT
  Age: 73 Year
  Sex: Female

DRUGS (9)
  1. LANREOTIDE ACETATE [Suspect]
     Active Substance: LANREOTIDE ACETATE
     Indication: Neuroendocrine tumour
     Dosage: UNK
     Dates: start: 20230121, end: 20231222
  2. LANREOTIDE [Suspect]
     Active Substance: LANREOTIDE
     Indication: Neuroendocrine tumour
     Dosage: 120 MG, EVERY 28 DAYS
     Route: 058
  3. LANREOTIDE [Suspect]
     Active Substance: LANREOTIDE
     Dosage: 120 MG, EVERY 28 DAYS
     Route: 058
  4. LANREOTIDE [Suspect]
     Active Substance: LANREOTIDE
     Dosage: 120 MG, EVERY 28 DAYS (E28D)
     Route: 058
  5. LANREOTIDE [Suspect]
     Active Substance: LANREOTIDE
     Dosage: 120 MG, EVERY 28 DAYS (E28D)
     Route: 058
  6. LANREOTIDE [Suspect]
     Active Substance: LANREOTIDE
     Dosage: 120 MG, EVERY 28 DAYS (E28D)
     Route: 058
  7. LANREOTIDE [Suspect]
     Active Substance: LANREOTIDE
     Dosage: 120 MG, EVERY 28 DAYS (E28D)
     Route: 058
  8. LANREOTIDE [Suspect]
     Active Substance: LANREOTIDE
     Dosage: 120 MG, EVERY 28 DAYS (E28D)
     Route: 058
  9. LANREOTIDE [Suspect]
     Active Substance: LANREOTIDE
     Dosage: 120 MG, EVERY 28 DAYS (E28D) (RIGHT UPPER OUTER BUTTOCK)
     Route: 058
     Dates: start: 20251202

REACTIONS (20)
  - Pain [Unknown]
  - Miller Fisher syndrome [Unknown]
  - Ataxia [Unknown]
  - Areflexia [Unknown]
  - Contusion [Unknown]
  - Abdominal discomfort [Recovering/Resolving]
  - Discomfort [Unknown]
  - Stress [Unknown]
  - Discomfort [Unknown]
  - Neoplasm progression [Not Recovered/Not Resolved]
  - Pain [Unknown]
  - Injection site haemorrhage [Unknown]
  - Flatulence [Unknown]
  - Weight decreased [Not Recovered/Not Resolved]
  - Dyspepsia [Unknown]
  - Abdominal distension [Unknown]
  - Asthenia [Unknown]
  - Abdominal pain [Not Recovered/Not Resolved]
  - Abdominal pain upper [Unknown]
  - Product substitution issue [Unknown]

NARRATIVE: CASE EVENT DATE: 20250301
